FAERS Safety Report 14552846 (Version 3)
Quarter: 2018Q2

REPORT INFORMATION
  Report Type: Report from Study
  Country: US (occurrence: US)
  Receive Date: 20180220
  Receipt Date: 20180430
  Transmission Date: 20180711
  Serious: Yes (Death, Other)
  Sender: FDA-Public Use
  Company Number: US-ASTELLAS-2018US007821

PATIENT

DRUGS (2)
  1. ERLOTINIB [Suspect]
     Active Substance: ERLOTINIB
     Indication: NON-SMALL CELL LUNG CANCER
     Route: 048
  2. GEFITINIB. [Suspect]
     Active Substance: GEFITINIB
     Indication: NON-SMALL CELL LUNG CANCER
     Route: 048

REACTIONS (89)
  - Dizziness [Unknown]
  - Hyperglycaemia [Unknown]
  - Procedural pneumothorax [Unknown]
  - Pericardial effusion [Unknown]
  - Bacteraemia [Unknown]
  - Febrile infection [Unknown]
  - Diarrhoea [Unknown]
  - Decreased appetite [Unknown]
  - Dyspnoea [Unknown]
  - Pyrexia [Unknown]
  - Anaemia [Unknown]
  - Hypoglycaemia [Unknown]
  - Aortic dissection [Unknown]
  - Pulmonary haemorrhage [Unknown]
  - Asthma [Unknown]
  - Subarachnoid haemorrhage [Unknown]
  - Hepatic failure [Unknown]
  - Pulmonary embolism [Unknown]
  - Pleural effusion [Unknown]
  - Prostate cancer [Unknown]
  - Uterine leiomyoma [Unknown]
  - Bundle branch block left [Unknown]
  - Clostridium difficile infection [Unknown]
  - Mouth ulceration [Unknown]
  - Platelet count decreased [Unknown]
  - Gastroenteritis [Unknown]
  - Melaena [Unknown]
  - Death [Fatal]
  - Seizure [Unknown]
  - Peripheral motor neuropathy [Unknown]
  - Chronic gastritis [Unknown]
  - Orthostatic hypotension [Unknown]
  - Circulatory collapse [Unknown]
  - Uterine polyp [Unknown]
  - Drug withdrawal syndrome [Unknown]
  - Endometrial adenocarcinoma [Unknown]
  - Perineal abscess [Unknown]
  - Hyponatraemia [Unknown]
  - Dermatitis acneiform [Unknown]
  - Confusional state [Unknown]
  - Angina pectoris [Unknown]
  - Ovarian fibroma [Unknown]
  - Pneumothorax [Unknown]
  - Respiratory failure [Unknown]
  - Musculoskeletal chest pain [Unknown]
  - General physical health deterioration [Unknown]
  - Pleural infection [Unknown]
  - Diverticulitis [Unknown]
  - Cerebrovascular accident [Unknown]
  - Diarrhoea infectious [Unknown]
  - Pneumonia aspiration [Unknown]
  - Gastrointestinal haemorrhage [Unknown]
  - Alanine aminotransferase increased [Unknown]
  - Sepsis [Unknown]
  - Bronchitis [Unknown]
  - Electrocardiogram QT prolonged [Unknown]
  - Vertigo [Unknown]
  - Drug-induced liver injury [Unknown]
  - Flank pain [Unknown]
  - Ureterolithiasis [Unknown]
  - Femoral neck fracture [Unknown]
  - Cystitis [Unknown]
  - Vomiting [Unknown]
  - Aspartate aminotransferase increased [Unknown]
  - Migraine [Unknown]
  - Peripheral artery occlusion [Unknown]
  - Pathological fracture [Unknown]
  - Condition aggravated [Unknown]
  - Rectal abscess [Unknown]
  - Endocarditis [Unknown]
  - Sinusitis [Unknown]
  - Ischaemic stroke [Unknown]
  - Lower respiratory tract infection viral [Unknown]
  - Toxic epidermal necrolysis [Unknown]
  - Cerebral infarction [Unknown]
  - Fatigue [Unknown]
  - Pneumonia [Unknown]
  - Anal abscess [Unknown]
  - Brain oedema [Unknown]
  - Fall [Unknown]
  - Haemoptysis [Unknown]
  - Cognitive disorder [Unknown]
  - Device related infection [Unknown]
  - Pharyngotonsillitis [Unknown]
  - Chest pain [Unknown]
  - Salmonella bacteraemia [Unknown]
  - Escherichia urinary tract infection [Unknown]
  - Hypokalaemia [Unknown]
  - Interstitial lung disease [Unknown]
